FAERS Safety Report 16954589 (Version 2)
Quarter: 2019Q4

REPORT INFORMATION
  Report Type: Report from Study
  Country: None (occurrence: CO)
  Receive Date: 20191024
  Receipt Date: 20191130
  Transmission Date: 20200122
  Serious: Yes (Other)
  Sender: FDA-Public Use
  Company Number: CO-ABBVIE-19K-036-2974121-00

PATIENT
  Age: 26 Year
  Sex: Female
  Weight: 69 kg

DRUGS (2)
  1. HUMIRA [Suspect]
     Active Substance: ADALIMUMAB
     Indication: HIDRADENITIS
     Route: 058
     Dates: start: 20180619, end: 20190406
  2. LEVOTHYROXINE. [Concomitant]
     Active Substance: LEVOTHYROXINE
     Indication: PRODUCT USED FOR UNKNOWN INDICATION
     Route: 048

REACTIONS (4)
  - Gastrooesophageal reflux disease [Unknown]
  - Diarrhoea [Recovered/Resolved]
  - Mobility decreased [Not Recovered/Not Resolved]
  - Systemic lupus erythematosus [Not Recovered/Not Resolved]

NARRATIVE: CASE EVENT DATE: 2019
